FAERS Safety Report 20558648 (Version 1)
Quarter: 2022Q1

REPORT INFORMATION
  Report Type: Spontaneous
  Country: DE (occurrence: DE)
  Receive Date: 20220307
  Receipt Date: 20220307
  Transmission Date: 20220423
  Serious: Yes (Other)
  Sender: FDA-Public Use
  Company Number: DE-NOVARTISPH-NVSC2022DE052322

PATIENT
  Sex: Female

DRUGS (2)
  1. DEXAMETHASONE\NEOMYCIN SULFATE\POLYMYXIN B SULFATE [Suspect]
     Active Substance: DEXAMETHASONE\NEOMYCIN SULFATE\POLYMYXIN B SULFATE
     Indication: Cataract
     Dosage: UNK, QID (3500 I.E./ML, 6000 I.E./ML) (4X DAILY)
     Route: 065
     Dates: start: 20220224
  2. DEXPANTHENOL [Concomitant]
     Active Substance: DEXPANTHENOL
     Indication: Product used for unknown indication
     Dosage: UNK
     Route: 065

REACTIONS (4)
  - Blood pressure increased [Unknown]
  - Visual impairment [Unknown]
  - Corneal oedema [Unknown]
  - Ear disorder [Unknown]

NARRATIVE: CASE EVENT DATE: 20220201
